FAERS Safety Report 5125835-1 (Version None)
Quarter: 2006Q3

REPORT INFORMATION
  Report Type: 
  Country: None (occurrence: None)
  Receive Date: 20060818
  Receipt Date: 20060719
  Transmission Date: 20061208
  Serious: No
  Sender: FDA-Public Use
  Company Number: SPV1-2006-00244

PATIENT
  Sex: Female
  Weight: 101 kg

DRUGS (3)
  1. FOSRENOL [Suspect]
     Indication: HYPERPHOSPHATAEMIA
     Dosage: 1000 MG, 3X/DAY:TID
     Dates: start: 20060713, end: 20060717
  2. TUMS /00219301/ (MAGNESIUM CARBONATE) [Concomitant]
  3. CIRPO /00042702/(CYPROHEPTADINE HYDROCHLORIDE) [Concomitant]

REACTIONS (2)
  - CONFUSIONAL STATE [None]
  - DIZZINESS [None]
